FAERS Safety Report 16675203 (Version 1)
Quarter: 2019Q3

REPORT INFORMATION
  Report Type: Spontaneous
  Country: US (occurrence: US)
  Receive Date: 20190806
  Receipt Date: 20190806
  Transmission Date: 20191004
  Serious: Yes (Other)
  Sender: FDA-Public Use
  Company Number: US-BAUSCH-BL-2019-022302

PATIENT
  Age: 72 Year
  Sex: Female

DRUGS (2)
  1. XIFAXAN [Suspect]
     Active Substance: RIFAXIMIN
     Indication: BACTERIAL INFECTION
     Route: 065
  2. XIFAXAN [Suspect]
     Active Substance: RIFAXIMIN
     Indication: PRODUCT USE IN UNAPPROVED INDICATION

REACTIONS (6)
  - Bedridden [Not Recovered/Not Resolved]
  - Drug effective for unapproved indication [Unknown]
  - Inability to afford medication [Unknown]
  - Product use in unapproved indication [Unknown]
  - Ill-defined disorder [Not Recovered/Not Resolved]
  - Disease recurrence [Unknown]
